FAERS Safety Report 25882004 (Version 2)
Quarter: 2025Q4

REPORT INFORMATION
  Report Type: Report from Study
  Country: BR (occurrence: BR)
  Receive Date: 20251005
  Receipt Date: 20251017
  Transmission Date: 20260117
  Serious: Yes (Hospitalization, Other)
  Sender: JOHNSON AND JOHNSON
  Company Number: BR-JNJFOC-20250504170

PATIENT
  Age: 28 Year
  Sex: Male
  Weight: 63 kg

DRUGS (3)
  1. INVEGA SUSTENNA [Suspect]
     Active Substance: PALIPERIDONE PALMITATE
     Indication: Schizoaffective disorder
     Dosage: LAST ADMINISTRATION PERFORMED ON 27-AUG-2025, WITH THE NEXT ADMINISTRATION SCHEDULED FOR 29-SEP-2025
     Route: 030
     Dates: start: 20240701
  2. INVEGA SUSTENNA [Suspect]
     Active Substance: PALIPERIDONE PALMITATE
  3. INVEGA SUSTENNA [Suspect]
     Active Substance: PALIPERIDONE PALMITATE

REACTIONS (8)
  - Suicide attempt [Not Recovered/Not Resolved]
  - Bipolar disorder [Not Recovered/Not Resolved]
  - Borderline personality disorder [Unknown]
  - Attention deficit hyperactivity disorder [Unknown]
  - Pneumonia [Unknown]
  - Haemothorax [Unknown]
  - Thrombosis [Unknown]
  - Weight decreased [Unknown]

NARRATIVE: CASE EVENT DATE: 20250101
